FAERS Safety Report 16140138 (Version 1)
Quarter: 2019Q2

REPORT INFORMATION
  Report Type: Spontaneous
  Country: US (occurrence: US)
  Receive Date: 20190329
  Receipt Date: 20190329
  Transmission Date: 20190711
  Serious: Yes (Death)
  Sender: FDA-Public Use
  Company Number: None

PATIENT
  Age: 69 Year
  Sex: Female

DRUGS (9)
  1. ATORVASTATIN 20 MG [Concomitant]
     Active Substance: ATORVASTATIN
  2. METOPROLOL ER 50 MG [Concomitant]
  3. OLMESA 40 MG [Concomitant]
  4. ESOPEPRAZOLE 40 MG [Concomitant]
  5. TECFIDERA [Suspect]
     Active Substance: DIMETHYL FUMARATE
     Indication: MULTIPLE SCLEROSIS
     Route: 048
  6. HYDROCHORTIAZIDE 25 MG [Concomitant]
  7. PANCREAZE 2100 UNITS [Concomitant]
  8. CLONIDINE 0.2 MG [Concomitant]
  9. CARTIA XT 240 MG [Concomitant]

REACTIONS (1)
  - Death [None]

NARRATIVE: CASE EVENT DATE: 20190327
